FAERS Safety Report 6084246-5 (Version None)
Quarter: 2009Q1

REPORT INFORMATION
  Report Type: 
  Country: None (occurrence: None)
  Receive Date: 20090219
  Receipt Date: 20090212
  Transmission Date: 20090719
  Serious: Yes (Hospitalization)
  Sender: FDA-Public Use
  Company Number: US-ELI_LILLY_AND_COMPANY-US200901003239

PATIENT
  Sex: Female
  Weight: 124.26 kg

DRUGS (5)
  1. BYETTA [Suspect]
     Indication: TYPE 2 DIABETES MELLITUS
     Dosage: 5 UG, 2/D
     Route: 058
     Dates: start: 20080101, end: 20080201
  2. BYETTA [Suspect]
     Dosage: 10 UG, 2/D
     Dates: start: 20080201
  3. LANTUS [Concomitant]
     Indication: TYPE 2 DIABETES MELLITUS
     Dosage: 40 U, EACH EVENING
  4. GLIPIZIDE [Concomitant]
     Dosage: UNK, UNKNOWN
  5. SYMLIN [Concomitant]
     Dosage: UNK, UNKNOWN

REACTIONS (11)
  - ABNORMAL BEHAVIOUR [None]
  - APPENDICITIS [None]
  - BLOOD GLUCOSE DECREASED [None]
  - BLOOD GLUCOSE INCREASED [None]
  - CONFUSIONAL STATE [None]
  - DIZZINESS [None]
  - INJECTION SITE HAEMORRHAGE [None]
  - NAUSEA [None]
  - NERVOUSNESS [None]
  - SOMNOLENCE [None]
  - WEIGHT INCREASED [None]
